FAERS Safety Report 23303894 (Version 1)
Quarter: 2023Q4

REPORT INFORMATION
  Report Type: Spontaneous
  Country: JP (occurrence: JP)
  Receive Date: 20231215
  Receipt Date: 20231215
  Transmission Date: 20240109
  Serious: Yes (Hospitalization)
  Sender: FDA-Public Use
  Company Number: JP-Eisai-202311391_LEN-RCC_P_1

PATIENT
  Age: 66 Year
  Sex: Male
  Weight: 52 kg

DRUGS (4)
  1. LENVIMA [Suspect]
     Active Substance: LENVATINIB
     Indication: Renal cancer
     Dosage: DOSE UNKNOWN
     Route: 048
     Dates: start: 20230601
  2. KEYTRUDA [Suspect]
     Active Substance: PEMBROLIZUMAB
     Indication: Renal cancer
     Route: 041
     Dates: start: 20230601, end: 20231005
  3. HERBALS [Concomitant]
     Active Substance: HERBALS
     Indication: Product used for unknown indication
     Dosage: DOSE UNKNOWN
     Route: 048
  4. AZULENE [Concomitant]
     Active Substance: AZULENE
     Indication: Product used for unknown indication
     Dosage: DOSE UNKNOWN
     Route: 048

REACTIONS (1)
  - Immune-mediated gastritis [Not Recovered/Not Resolved]

NARRATIVE: CASE EVENT DATE: 20231123
